FAERS Safety Report 23081578 (Version 1)
Quarter: 2023Q4

REPORT INFORMATION
  Report Type: Spontaneous
  Country: JP (occurrence: JP)
  Receive Date: 20231019
  Receipt Date: 20231019
  Transmission Date: 20240110
  Serious: Yes (Hospitalization, Other)
  Sender: FDA-Public Use
  Company Number: JP-aspen-SDZ2023JP005035AA

PATIENT
  Age: 43 Year
  Sex: Female

DRUGS (4)
  1. BETAMETHASONE SODIUM PHOSPHATE [Suspect]
     Active Substance: BETAMETHASONE SODIUM PHOSPHATE
     Indication: Product used for unknown indication
     Dosage: UNK
     Route: 030
  2. AMOXICILLIN [Suspect]
     Active Substance: AMOXICILLIN
     Indication: Product used for unknown indication
     Route: 065
  3. RITODRINE HYDROCHLORIDE [Suspect]
     Active Substance: RITODRINE HYDROCHLORIDE
     Indication: Product used for unknown indication
     Dosage: UNK
     Route: 065
  4. AMPICILLIN AND SULBACTAM [Suspect]
     Active Substance: AMPICILLIN SODIUM\SULBACTAM SODIUM
     Indication: Product used for unknown indication
     Dosage: UNK
     Route: 065

REACTIONS (6)
  - Escherichia infection [Unknown]
  - Septic shock [Unknown]
  - Genital haemorrhage [Unknown]
  - Intrauterine infection [Unknown]
  - Cervical incompetence [Unknown]
  - Maternal exposure during pregnancy [Unknown]
